FAERS Safety Report 12796902 (Version 1)
Quarter: 2016Q3

REPORT INFORMATION
  Report Type: Spontaneous
  Country: US (occurrence: US)
  Receive Date: 20160929
  Receipt Date: 20160929
  Transmission Date: 20161109
  Serious: Yes (Hospitalization)
  Sender: FDA-Public Use
  Company Number: None

PATIENT
  Age: 66 Year
  Sex: Female

DRUGS (10)
  1. MULTI-VITE [Concomitant]
  2. OXYCONTIN [Concomitant]
     Active Substance: OXYCODONE HYDROCHLORIDE
  3. LEVOXYL [Concomitant]
     Active Substance: LEVOTHYROXINE SODIUM
  4. CLONAZEPAM. [Concomitant]
     Active Substance: CLONAZEPAM
  5. GLEEVEC [Suspect]
     Active Substance: IMATINIB MESYLATE
     Indication: NEOPLASM MALIGNANT
     Route: 048
     Dates: start: 20151027
  6. MAGNESIUM-OX [Concomitant]
  7. SIMVASTATIN. [Concomitant]
     Active Substance: SIMVASTATIN
  8. ATENOLOL. [Concomitant]
     Active Substance: ATENOLOL
  9. WELLBUTRIN [Concomitant]
     Active Substance: BUPROPION HYDROCHLORIDE
  10. PANCREATIN [Concomitant]
     Active Substance: PANCRELIPASE

REACTIONS (2)
  - Intestinal obstruction [None]
  - Eye swelling [None]

NARRATIVE: CASE EVENT DATE: 201609
